FAERS Safety Report 9918866 (Version 2)
Quarter: 2014Q2

REPORT INFORMATION
  Report Type: Spontaneous
  Country: US (occurrence: US)
  Receive Date: 20140224
  Receipt Date: 20140429
  Transmission Date: 20141212
  Serious: Yes (Disabling)
  Sender: FDA-Public Use
  Company Number: US-BAYER-2014-027662

PATIENT
  Age: 27 Year
  Sex: Female

DRUGS (1)
  1. MIRENA [Suspect]
     Indication: CONTRACEPTION
     Dosage: 20 MCG/24HR, CONT
     Route: 015
     Dates: start: 20131009, end: 20131018

REACTIONS (13)
  - Device dislocation [None]
  - Pelvic pain [None]
  - Abdominal pain lower [None]
  - Anxiety [None]
  - Procedural pain [None]
  - Deformity [None]
  - Emotional distress [None]
  - Pain [None]
  - Scar [None]
  - Incision site pain [None]
  - Gastrointestinal disorder [None]
  - Gastrointestinal pain [None]
  - Depression [None]
